FAERS Safety Report 6100145-4 (Version None)
Quarter: 2009Q1

REPORT INFORMATION
  Report Type: 
  Country: None (occurrence: None)
  Receive Date: 20090302
  Receipt Date: 20090302
  Transmission Date: 20090719
  Serious: Yes (Other)
  Sender: FDA-Public Use
  Company Number: None

PATIENT
  Age: 64 Year
  Sex: Female
  Weight: 72.5755 kg

DRUGS (1)
  1. CENTRUM MULTIVITAMIN,MULTI VARIES PER INGREDIENT WWW.CENTRUM.COM [Suspect]
     Indication: IMMUNE SYSTEM DISORDER
     Dosage: 1 1 EACH DAY
     Dates: start: 20090227, end: 20090227

REACTIONS (6)
  - ASTHENIA [None]
  - BLOOD GLUCOSE INCREASED [None]
  - FEAR [None]
  - LOSS OF CONSCIOUSNESS [None]
  - PRESYNCOPE [None]
  - PRODUCT QUALITY ISSUE [None]
